FAERS Safety Report 14498197 (Version 1)
Quarter: 2018Q1

REPORT INFORMATION
  Report Type: Spontaneous
  Country: US (occurrence: US)
  Receive Date: 20180206
  Receipt Date: 20180206
  Transmission Date: 20180509
  Serious: No
  Sender: FDA-Public Use
  Company Number: None

PATIENT
  Age: 44 Year
  Sex: Female
  Weight: 54.9 kg

DRUGS (11)
  1. LAC DELPHINIUM 200C [Suspect]
     Active Substance: HOMEOPATHICS
     Indication: IRRITABLE BOWEL SYNDROME
     Dates: start: 20170624, end: 20170824
  2. OPTI ZINK [Concomitant]
  3. ALPHA LIPOID ACID [Concomitant]
  4. LAC DELPHINIUM 200C [Suspect]
     Active Substance: HOMEOPATHICS
     Indication: UTERINE POLYP
     Dates: start: 20170624, end: 20170824
  5. COD LIVER OIL [Concomitant]
     Active Substance: COD LIVER OIL
  6. MILK THISTLE [Concomitant]
     Active Substance: DIETARY SUPPLEMENT\HERBALS\MILK THISTLE
  7. LAC DELPHINIUM 200C [Suspect]
     Active Substance: HOMEOPATHICS
     Indication: ANXIETY
     Dates: start: 20170624, end: 20170824
  8. ACETYL L CARNITINE [Concomitant]
  9. CINNAMON. [Concomitant]
     Active Substance: CINNAMON
  10. LAC DELPHINIUM 200C [Suspect]
     Active Substance: HOMEOPATHICS
     Indication: PANIC ATTACK
     Dates: start: 20170624, end: 20170824
  11. PRIMROSE OIL [Concomitant]

REACTIONS (7)
  - Abdominal pain upper [None]
  - Pyrexia [None]
  - Rash [None]
  - Condition aggravated [None]
  - Abscess [None]
  - Rash erythematous [None]
  - Dermatitis [None]

NARRATIVE: CASE EVENT DATE: 20170626
